FAERS Safety Report 7700468-9 (Version None)
Quarter: 2011Q3

REPORT INFORMATION
  Report Type: 
  Country: None (occurrence: None)
  Receive Date: 20110817
  Receipt Date: 20110802
  Transmission Date: 20111222
  Serious: Yes (Life-Threatening, Hospitalization)
  Sender: FDA-Public Use
  Company Number: TCI2011A04298

PATIENT
  Age: 78 Year
  Sex: Female

DRUGS (9)
  1. NOVORAPID [Concomitant]
  2. RASILEZ (ALISKIREN) [Concomitant]
  3. PIOGLITAZONE HYDROCHLORIDE AND METFORMIN HYDROCHLORIDE [Suspect]
     Indication: TYPE 2 DIABETES MELLITUS
     Dosage: 1 TAB. (1 TAB., 1 IN 1 D)
     Route: 048
     Dates: start: 20100812, end: 20110702
  4. CANDESARTAN CILEXETIL [Concomitant]
  5. BASEN OD [Concomitant]
  6. REZALTAS HD (OLMESARTAN MEDOXOMIL/AZELNIDIPINE) (ANTIHYPERTENSIVES) [Concomitant]
  7. ACTOS [Suspect]
     Indication: TYPE 2 DIABETES MELLITUS
     Dosage: 15 MG (15 MG, 1 IN 1 D)
     Route: 048
     Dates: start: 20091226, end: 20100812
  8. NORVASC [Concomitant]
  9. METFORMIN HYDROCHLORIDE [Concomitant]

REACTIONS (2)
  - BLADDER CANCER [None]
  - PYURIA [None]
